FAERS Safety Report 11484228 (Version 2)
Quarter: 2015Q3

REPORT INFORMATION
  Report Type: Spontaneous
  Country: US (occurrence: US)
  Receive Date: 20150903
  Receipt Date: 20150903
  Transmission Date: 20151125
  Serious: No
  Sender: FDA-Public Use
  Company Number: US-ELI_LILLY_AND_COMPANY-US201205003732

PATIENT
  Age: 50 Year
  Sex: Female

DRUGS (4)
  1. FISH OIL [Concomitant]
     Active Substance: FISH OIL
  2. CYMBALTA [Suspect]
     Active Substance: DULOXETINE HYDROCHLORIDE
     Indication: DEPRESSION
     Dosage: 30 MG, BID
     Dates: start: 201203
  3. CYMBALTA [Suspect]
     Active Substance: DULOXETINE HYDROCHLORIDE
     Dosage: 60 MG, QD
     Dates: end: 20120430
  4. MULTIVITAMIN [Concomitant]
     Active Substance: VITAMINS

REACTIONS (13)
  - Epistaxis [Unknown]
  - Fungal infection [Unknown]
  - Dry mouth [Unknown]
  - Drug withdrawal syndrome [Unknown]
  - Terminal insomnia [Unknown]
  - Nausea [Recovering/Resolving]
  - Obsessive thoughts [Unknown]
  - Intentional product misuse [Recovered/Resolved]
  - Alopecia [Unknown]
  - Drug ineffective [Recovered/Resolved]
  - Nausea [Unknown]
  - Initial insomnia [Unknown]
  - Dizziness [Unknown]

NARRATIVE: CASE EVENT DATE: 20120430
